FAERS Safety Report 20021280 (Version 1)
Quarter: 2021Q4

REPORT INFORMATION
  Report Type: Spontaneous
  Country: CN (occurrence: CN)
  Receive Date: 20211101
  Receipt Date: 20211101
  Transmission Date: 20220303
  Serious: Yes (Hospitalization, Other)
  Sender: FDA-Public Use
  Company Number: CN-AMNEAL PHARMACEUTICALS-2021-AMRX-04361

PATIENT
  Age: 38 Year
  Sex: Male
  Weight: 70 kg

DRUGS (1)
  1. ALBENZA [Suspect]
     Active Substance: ALBENDAZOLE
     Indication: Parasitic gastroenteritis
     Dosage: 2 TABLETS, QD
     Route: 048
     Dates: start: 20211010, end: 20211010

REACTIONS (3)
  - Demyelination [Unknown]
  - Mobility decreased [Unknown]
  - Anaesthesia [Unknown]

NARRATIVE: CASE EVENT DATE: 20211012
